FAERS Safety Report 15299748 (Version 1)
Quarter: 2018Q3

REPORT INFORMATION
  Report Type: Report from Study
  Country: None (occurrence: US)
  Receive Date: 20180821
  Receipt Date: 20180821
  Transmission Date: 20181010
  Serious: Yes (Other)
  Sender: FDA-Public Use
  Company Number: US-ABBVIE-18K-163-2392124-00

PATIENT
  Age: 35 Year
  Sex: Female
  Weight: 83.08 kg

DRUGS (7)
  1. HUMIRA [Suspect]
     Active Substance: ADALIMUMAB
     Route: 058
     Dates: start: 20180119
  2. PROGESTERONE INJECTIONS [Concomitant]
     Indication: HORMONE THERAPY
  3. HUMIRA [Suspect]
     Active Substance: ADALIMUMAB
     Indication: HIDRADENITIS
     Route: 058
     Dates: start: 20161007, end: 2016
  4. BYSTOLIC [Concomitant]
     Active Substance: NEBIVOLOL HYDROCHLORIDE
     Indication: HYPERTENSION
  5. ESTRADIOL. [Concomitant]
     Active Substance: ESTRADIOL
     Indication: UTERINE ENLARGEMENT
  6. ESTRADIOL. [Concomitant]
     Active Substance: ESTRADIOL
     Indication: HORMONE THERAPY
  7. PROGESTERONE INJECTIONS [Concomitant]
     Indication: UTERINE ENLARGEMENT

REACTIONS (6)
  - Twin pregnancy [Unknown]
  - Drug ineffective [Not Recovered/Not Resolved]
  - Exposure during pregnancy [Unknown]
  - Failed in vitro fertilisation [Unknown]
  - Abortion spontaneous [Unknown]
  - Failed in vitro fertilisation [Unknown]

NARRATIVE: CASE EVENT DATE: 201610
